FAERS Safety Report 17039017 (Version 1)
Quarter: 2019Q4

REPORT INFORMATION
  Report Type: Spontaneous
  Country: US (occurrence: US)
  Receive Date: 20191115
  Receipt Date: 20191115
  Transmission Date: 20200122
  Serious: No
  Sender: FDA-Public Use
  Company Number: US-HORIZON-PEN-VIM-0967-2019

PATIENT
  Age: 70 Year
  Sex: Female

DRUGS (2)
  1. VIMOVO [Suspect]
     Active Substance: ESOMEPRAZOLE MAGNESIUM\NAPROXEN
     Indication: JOINT INJURY
     Dosage: SPARINGLY AS NEEDED
     Dates: start: 2017, end: 2019
  2. PENNSAID [Suspect]
     Active Substance: DICLOFENAC SODIUM
     Indication: JOINT INJURY

REACTIONS (6)
  - Off label use [Unknown]
  - Expired product administered [Unknown]
  - Insurance issue [Unknown]
  - Therapy cessation [Unknown]
  - Drug ineffective for unapproved indication [Unknown]
  - Arthralgia [Unknown]
